FAERS Safety Report 11067971 (Version 1)
Quarter: 2015Q2

REPORT INFORMATION
  Report Type: Spontaneous
  Country: US (occurrence: None)
  Receive Date: 20150424
  Receipt Date: 20150424
  Transmission Date: 20150821
  Serious: Yes (Hospitalization, Other)
  Sender: FDA-Public Use
  Company Number: None

PATIENT
  Age: 65 Year
  Sex: Female

DRUGS (1)
  1. LETAIRIS [Suspect]
     Active Substance: AMBRISENTAN
     Indication: PULMONARY ARTERIAL HYPERTENSION
     Dosage: 5MG, QD, ORAL
     Route: 048
     Dates: start: 20150227

REACTIONS (3)
  - Fluid retention [None]
  - Fluid overload [None]
  - Renal failure [None]

NARRATIVE: CASE EVENT DATE: 20150325
